FAERS Safety Report 6911815-X (Version None)
Quarter: 2010Q3

REPORT INFORMATION
  Report Type: 
  Country: None (occurrence: None)
  Receive Date: 20100806
  Receipt Date: 20070814
  Transmission Date: 20110219
  Serious: No
  Sender: FDA-Public Use
  Company Number: US-PFIZER INC-2007064820

PATIENT
  Sex: Male
  Weight: 84.1 kg

DRUGS (6)
  1. DETROL LA [Suspect]
     Indication: PROSTATOMEGALY
     Route: 048
     Dates: start: 20060101
  2. DETROL LA [Interacting]
     Indication: POLLAKIURIA
  3. ALL OTHER THERAPEUTIC PRODUCTS [Interacting]
     Dates: start: 20070301, end: 20070715
  4. UROXATRAL [Concomitant]
     Dates: start: 20060301
  5. CARDIOVASCULAR SYSTEM DRUGS [Concomitant]
  6. DRUG, UNSPECIFIED [Concomitant]

REACTIONS (4)
  - CONTUSION [None]
  - DRUG INEFFECTIVE [None]
  - DRUG INTERACTION [None]
  - ERECTILE DYSFUNCTION [None]
